FAERS Safety Report 7806013-1 (Version None)
Quarter: 2011Q4

REPORT INFORMATION
  Report Type: 
  Country: None (occurrence: None)
  Receive Date: 20111011
  Receipt Date: 20110929
  Transmission Date: 20120403
  Serious: Yes (Hospitalization, Other)
  Sender: FDA-Public Use
  Company Number: PHHY2011TW88580

PATIENT
  Sex: Male
  Weight: 54 kg

DRUGS (1)
  1. EXJADE [Suspect]

REACTIONS (11)
  - SPINAL OSTEOARTHRITIS [None]
  - EXOSTOSIS [None]
  - LUNG INFILTRATION [None]
  - DYSPNOEA [None]
  - CARDIOMEGALY [None]
  - PNEUMONIA [None]
  - MEDIASTINAL DISORDER [None]
  - AORTIC DISORDER [None]
  - COUGH [None]
  - ARTERIOSCLEROSIS [None]
  - PYREXIA [None]
